FAERS Safety Report 7589467-8 (Version None)
Quarter: 2011Q3

REPORT INFORMATION
  Report Type: 
  Country: None (occurrence: None)
  Receive Date: 20110705
  Receipt Date: 20110627
  Transmission Date: 20111222
  Serious: Yes (Death, Hospitalization)
  Sender: FDA-Public Use
  Company Number: JP-ROCHE-776848

PATIENT
  Sex: Male

DRUGS (5)
  1. TOCILIZUMAB [Suspect]
     Indication: RHEUMATOID ARTHRITIS
     Dosage: DOSE: 550.4 - 590.4 MG
     Route: 041
     Dates: start: 20081219, end: 20100226
  2. TOCILIZUMAB [Suspect]
     Dosage: DOSE: 504 - 536 MG
     Route: 041
     Dates: start: 20100922, end: 20110223
  3. PURSENNID [Concomitant]
     Dosage: TAKEN AS NEEDED (DOSAGE DURING A DAY: 24 MG
     Route: 048
  4. MOBIC [Concomitant]
     Route: 048
  5. PREDNISOLONE [Concomitant]
     Route: 048

REACTIONS (3)
  - PNEUMONIA [None]
  - POLYP [None]
  - MYOCARDIAL ISCHAEMIA [None]
